FAERS Safety Report 4480647-7 (Version None)
Quarter: 2004Q4

REPORT INFORMATION
  Report Type: 
  Country: None (occurrence: None)
  Receive Date: 20041019
  Receipt Date: 20041014
  Transmission Date: 20050328
  Serious: Yes (Other)
  Sender: FDA-Public Use
  Company Number: ENTC2004-0194

PATIENT
  Age: 80 Year
  Sex: Male

DRUGS (2)
  1. STALEVO 100 [Suspect]
     Indication: PARKINSONISM
     Dosage: 50 MG TID
     Route: 048
  2. MIRAPEX [Concomitant]

REACTIONS (3)
  - HYPERTENSIVE CRISIS [None]
  - VISUAL ACUITY REDUCED [None]
  - VISUAL DISTURBANCE [None]
